FAERS Safety Report 7050512-X (Version None)
Quarter: 2010Q4

REPORT INFORMATION
  Report Type: 
  Country: None (occurrence: None)
  Receive Date: 20101018
  Receipt Date: 20101012
  Transmission Date: 20110411
  Serious: Yes (Other)
  Sender: FDA-Public Use
  Company Number: US-PFIZER INC-2010129822

PATIENT
  Sex: Female
  Weight: 105.68 kg

DRUGS (3)
  1. CELEBREX [Suspect]
     Indication: ARTHRALGIA
     Dosage: 200 MG, 1X/DAY
     Route: 048
     Dates: start: 19950101, end: 19950101
  2. MELOXICAM [Suspect]
     Indication: ARTHRITIS
     Dates: end: 20101001
  3. GLUCOSAMINE HYDROCHLORIDE/CHONDROITIN SULFATE [Concomitant]
     Indication: ARTHRALGIA

REACTIONS (6)
  - BLOOD CHOLESTEROL [None]
  - BLOOD PRESSURE [None]
  - CONSTIPATION [None]
  - FLUID RETENTION [None]
  - GLAUCOMA [None]
  - JOINT SWELLING [None]
